FAERS Safety Report 9186992 (Version 4)
Quarter: 2013Q2

REPORT INFORMATION
  Report Type: Spontaneous
  Country: CO (occurrence: CO)
  Receive Date: 20121107
  Receipt Date: 20130611
  Transmission Date: 20140414
  Serious: Yes (Hospitalization)
  Sender: FDA-Public Use
  Company Number: CO-BIOMARINP-003189

PATIENT
  Age: 9 Year
  Sex: Female
  Weight: 19.2 kg

DRUGS (4)
  1. NAGLAZYME [Suspect]
     Indication: MUCOPOLYSACCHARIDOSIS VI
     Dosage: 20MG,QW
     Route: 041
     Dates: start: 20110527
  2. LORATADINE [Concomitant]
     Indication: PREMEDICATION
  3. SILDENAFIL [Concomitant]
     Indication: PRODUCT USED FOR UNKNOWN INDICATION
  4. FUROSEMIDE [Concomitant]
     Indication: PRODUCT USED FOR UNKNOWN INDICATION

REACTIONS (6)
  - Asthmatic crisis [Recovered/Resolved]
  - Pulmonary hypertension [Recovered/Resolved]
  - Cardiac failure congestive [Recovered/Resolved]
  - Dyspnoea [Recovered/Resolved]
  - Tachypnoea [Recovered/Resolved]
  - Cyanosis [Recovered/Resolved]
